FAERS Safety Report 15120916 (Version 2)
Quarter: 2020Q3

REPORT INFORMATION
  Report Type: Report from Study
  Country: US (occurrence: US)
  Receive Date: 20180709
  Receipt Date: 20200820
  Transmission Date: 20201102
  Serious: Yes (Disabling)
  Sender: FDA-Public Use
  Company Number: US-SA-2018SA178043

PATIENT

DRUGS (2)
  1. SARILUMAB [Suspect]
     Active Substance: SARILUMAB
     Dosage: 200 MG, QOW
     Route: 058
     Dates: start: 20180814, end: 202007
  2. SARILUMAB [Suspect]
     Active Substance: SARILUMAB
     Indication: RHEUMATOID ARTHRITIS
     Dosage: 200 MG, QW
     Route: 058
     Dates: start: 201806

REACTIONS (8)
  - Gait disturbance [Unknown]
  - Abscess limb [Unknown]
  - Off label use [Unknown]
  - Skin discolouration [Unknown]
  - Joint swelling [Unknown]
  - Arthralgia [Unknown]
  - Mobility decreased [Unknown]
  - Synovial cyst [Unknown]

NARRATIVE: CASE EVENT DATE: 2018
